FAERS Safety Report 21473396 (Version 1)
Quarter: 2022Q4

REPORT INFORMATION
  Report Type: Spontaneous
  Country: CN (occurrence: CN)
  Receive Date: 20221018
  Receipt Date: 20221018
  Transmission Date: 20230112
  Serious: Yes (Other)
  Sender: FDA-Public Use
  Company Number: CN-PFIZER INC-PV202200083348

PATIENT
  Age: 26 Year
  Sex: Female
  Weight: 52 kg

DRUGS (7)
  1. CARBOPROST TROMETHAMINE [Suspect]
     Active Substance: CARBOPROST TROMETHAMINE
     Indication: Uterine hypotonus
     Dosage: 250 UG, 1X/DAY
     Route: 030
     Dates: start: 20221011, end: 20221011
  2. SODIUM LACTATE RINGER^S [Concomitant]
     Indication: Uterine hypotonus
     Dosage: 500 ML, 1X/DAY
     Route: 041
     Dates: start: 20221011, end: 20221011
  3. LIDOCAINE HYDROCHLORIDE [Concomitant]
     Active Substance: LIDOCAINE HYDROCHLORIDE
     Indication: Uterine hypotonus
     Dosage: 5 ML, 1X/DAY
     Route: 041
     Dates: start: 20221011, end: 20221011
  4. LIDOCAINE HYDROCHLORIDE [Concomitant]
     Active Substance: LIDOCAINE HYDROCHLORIDE
     Indication: Local anaesthesia
  5. OXYTOCIN [Concomitant]
     Active Substance: OXYTOCIN
     Indication: Uterine hypotonus
     Dosage: 20 IU, 1X/DAY
     Route: 041
     Dates: start: 20221011, end: 20221011
  6. DEXTROSE [Concomitant]
     Active Substance: DEXTROSE
     Indication: Uterine hypotonus
     Dosage: 100 ML, 1X/DAY
     Route: 041
     Dates: start: 20221011, end: 20221011
  7. CALCIUM GLUCONATE [Concomitant]
     Active Substance: CALCIUM GLUCONATE
     Indication: Uterine hypotonus
     Dosage: 10 ML, 1X/DAY
     Route: 041
     Dates: start: 20221011, end: 20221011

REACTIONS (4)
  - Nausea [Recovering/Resolving]
  - Vomiting [Recovering/Resolving]
  - Abdominal discomfort [Recovering/Resolving]
  - Abdominal pain upper [Recovering/Resolving]

NARRATIVE: CASE EVENT DATE: 20221011
